FAERS Safety Report 21060429 (Version 2)
Quarter: 2022Q3

REPORT INFORMATION
  Report Type: Spontaneous
  Country: US (occurrence: US)
  Receive Date: 20220708
  Receipt Date: 20220810
  Transmission Date: 20221027
  Serious: No
  Sender: FDA-Public Use
  Company Number: US-SANOFI-01171467

PATIENT
  Age: 38 Year
  Sex: Female
  Weight: 68.027 kg

DRUGS (2)
  1. DUPIXENT [Suspect]
     Active Substance: DUPILUMAB
     Dosage: 600 MG, 1X
     Route: 058
     Dates: start: 20220615, end: 20220615
  2. DUPIXENT [Suspect]
     Active Substance: DUPILUMAB
     Dosage: 300 MG

REACTIONS (4)
  - Dermatitis atopic [Unknown]
  - Headache [Unknown]
  - Drug hypersensitivity [Unknown]
  - Rash [Unknown]
